FAERS Safety Report 11644658 (Version 1)
Quarter: 2015Q4

REPORT INFORMATION
  Report Type: Spontaneous
  Country: US (occurrence: US)
  Receive Date: 20151020
  Receipt Date: 20151020
  Transmission Date: 20160304
  Serious: No
  Sender: FDA-Public Use
  Company Number: US-DEP_02728_2015

PATIENT
  Sex: Female
  Weight: 74 kg

DRUGS (8)
  1. NUCYNTA ER [Suspect]
     Active Substance: TAPENTADOL HYDROCHLORIDE
     Indication: PAIN
     Dosage: DF
     Route: 048
  2. LOSARTIN [Concomitant]
     Active Substance: LOSARTAN
     Indication: BLOOD PRESSURE ABNORMAL
     Dosage: DF
  3. IMITREX [Concomitant]
     Active Substance: SUMATRIPTAN\SUMATRIPTAN SUCCINATE
     Indication: BLOOD PRESSURE ABNORMAL
  4. SOMA [Suspect]
     Active Substance: CARISOPRODOL
     Indication: MUSCLE SPASMS
     Route: 048
  5. TRAMADOL. [Suspect]
     Active Substance: TRAMADOL
     Indication: PAIN
  6. GLUCOPHAGE [Concomitant]
     Active Substance: METFORMIN HYDROCHLORIDE
     Indication: DIABETES MELLITUS
     Dosage: DF
  7. MULTIVITAMIN [Concomitant]
     Active Substance: VITAMINS
     Indication: VITAMIN B COMPLEX DEFICIENCY
     Dosage: DF
  8. DUCOLOX [Concomitant]
     Indication: CONSTIPATION PROPHYLAXIS
     Dosage: DF

REACTIONS (7)
  - Abdominal distension [Unknown]
  - Drug effect prolonged [Unknown]
  - Constipation [Unknown]
  - Rectocele [Unknown]
  - Abdominal pain [Unknown]
  - Large intestinal obstruction [Unknown]
  - Faecaloma [Unknown]
